FAERS Safety Report 6825254-3 (Version None)
Quarter: 2010Q3

REPORT INFORMATION
  Report Type: 
  Country: None (occurrence: None)
  Receive Date: 20100708
  Receipt Date: 20061123
  Transmission Date: 20110219
  Serious: No
  Sender: FDA-Public Use
  Company Number: US-PFIZER INC-2006147697

PATIENT
  Sex: Female
  Weight: 82.1 kg

DRUGS (4)
  1. CHANTIX [Suspect]
     Indication: SMOKING CESSATION THERAPY
     Dates: start: 20061114
  2. CADUET [Concomitant]
     Indication: HYPERTENSION
  3. PREMARIN [Concomitant]
     Indication: HOT FLUSH
  4. SYNTHROID [Concomitant]
     Indication: THYROID DISORDER

REACTIONS (2)
  - PRURITUS [None]
  - RASH [None]
